FAERS Safety Report 17697749 (Version 1)
Quarter: 2020Q2

REPORT INFORMATION
  Report Type: Spontaneous
  Country: RU (occurrence: RU)
  Receive Date: 20200423
  Receipt Date: 20200423
  Transmission Date: 20200714
  Serious: Yes (Other)
  Sender: FDA-Public Use
  Company Number: RU-ROCHE-2587689

PATIENT
  Sex: Female

DRUGS (4)
  1. TRASTUZUMAB EMTANSINE [Suspect]
     Active Substance: ADO-TRASTUZUMAB EMTANSINE
     Indication: METASTASES TO CENTRAL NERVOUS SYSTEM
  2. TRASTUZUMAB EMTANSINE [Suspect]
     Active Substance: ADO-TRASTUZUMAB EMTANSINE
     Indication: BREAST CANCER
     Route: 065
     Dates: start: 20181214
  3. HERCEPTIN [Suspect]
     Active Substance: TRASTUZUMAB
     Route: 065
     Dates: start: 20170703
  4. HERCEPTIN [Suspect]
     Active Substance: TRASTUZUMAB
     Indication: BREAST CANCER
     Dosage: 3 COURSES
     Route: 065
     Dates: start: 2014

REACTIONS (9)
  - Joint ankylosis [Unknown]
  - Breast cancer metastatic [Not Recovered/Not Resolved]
  - Arteriosclerosis coronary artery [Unknown]
  - Gliosis [Unknown]
  - Renal hamartoma [Unknown]
  - Pleural thickening [Unknown]
  - Pulmonary fibrosis [Not Recovered/Not Resolved]
  - Hepatic steatosis [Unknown]
  - Pancreatic steatosis [Unknown]
